FAERS Safety Report 7545984-8 (Version None)
Quarter: 2011Q2

REPORT INFORMATION
  Report Type: 
  Country: None (occurrence: None)
  Receive Date: 20110524
  Receipt Date: 20110304
  Transmission Date: 20111010
  Serious: No
  Sender: FDA-Public Use
  Company Number: 028685

PATIENT
  Sex: Male
  Weight: 79.8 kg

DRUGS (6)
  1. LYSINE [Concomitant]
  2. VITAMIN B12 /00056201/ [Concomitant]
  3. ALOE VERA [Concomitant]
  4. CIMZIA [Suspect]
     Indication: CROHN'S DISEASE
     Dosage: (2 SHOTS SUBCUTANEOUS)
     Route: 058
     Dates: start: 20110122
  5. VITAMIN B6 [Concomitant]
  6. PROBIOTICA [Concomitant]

REACTIONS (2)
  - DRUG INEFFECTIVE [None]
  - ABDOMINAL PAIN UPPER [None]
